FAERS Safety Report 12700485 (Version 2)
Quarter: 2020Q1

REPORT INFORMATION
  Report Type: Report from Study
  Country: US (occurrence: US)
  Receive Date: 20160830
  Receipt Date: 20200220
  Transmission Date: 20200409
  Serious: Yes (Other)
  Sender: FDA-Public Use
  Company Number: US-SA-2016SA065660

PATIENT
  Age: 31 Year
  Sex: Male

DRUGS (6)
  1. AGALSIDASE BETA [Suspect]
     Active Substance: AGALSIDASE BETA
     Dosage: UNK UNK,QOW
     Route: 041
     Dates: start: 20200122
  2. BENADRYL [Concomitant]
     Active Substance: DIPHENHYDRAMINE HYDROCHLORIDE
     Indication: PREMEDICATION
     Dosage: 25 MG,UNK
     Route: 048
  3. AGALSIDASE BETA [Suspect]
     Active Substance: AGALSIDASE BETA
     Dosage: UNK UNK,QOW
     Route: 041
     Dates: start: 20160328, end: 20160328
  4. AGALSIDASE BETA [Suspect]
     Active Substance: AGALSIDASE BETA
     Indication: FABRY^S DISEASE
     Dosage: UNK UNK,QOW
     Route: 041
     Dates: start: 2013
  5. AGALSIDASE BETA [Suspect]
     Active Substance: AGALSIDASE BETA
     Dosage: UNK UNK,QOW
     Route: 041
     Dates: start: 20161215, end: 20200108
  6. PARACETAMOL [Concomitant]
     Active Substance: ACETAMINOPHEN
     Indication: PREMEDICATION
     Dosage: 650 MG,UNK
     Route: 048

REACTIONS (7)
  - Urticaria [Recovered/Resolved]
  - Pain [Unknown]
  - Cough [Recovering/Resolving]
  - Swelling [Unknown]
  - Pneumonia [Recovering/Resolving]
  - Vomiting [Recovered/Resolved]
  - Product dose omission [Unknown]

NARRATIVE: CASE EVENT DATE: 20160328
